FAERS Safety Report 24607014 (Version 3)
Quarter: 2024Q4

REPORT INFORMATION
  Report Type: Other
  Country: CA (occurrence: CA)
  Receive Date: 20241112
  Receipt Date: 20241216
  Transmission Date: 20250115
  Serious: Yes (Other)
  Sender: APOTEX
  Company Number: CA-APOTEX-2024AP017373

PATIENT
  Age: 34 Year
  Sex: Male

DRUGS (9)
  1. CLOBAZAM [Suspect]
     Active Substance: CLOBAZAM
     Indication: Product used for unknown indication
     Dosage: 10 MILLIGRAM, QD
     Route: 065
  2. CLOBAZAM [Suspect]
     Active Substance: CLOBAZAM
     Dosage: UNK (CYCLICAL)
     Route: 065
  3. CLOBAZAM [Suspect]
     Active Substance: CLOBAZAM
     Dosage: UNK
     Route: 065
  4. XCOPRI [Suspect]
     Active Substance: CENOBAMATE
     Indication: Partial seizures
     Dosage: 50 MILLIGRAM, QD
     Route: 048
  5. XCOPRI [Suspect]
     Active Substance: CENOBAMATE
     Indication: Epilepsy
     Dosage: 25 MILLIGRAM, QD
     Route: 048
  6. XCOPRI [Suspect]
     Active Substance: CENOBAMATE
     Dosage: 12.5 MILLIGRAM, QD
     Route: 048
  7. CARBAMAZEPINE [Concomitant]
     Active Substance: CARBAMAZEPINE
     Indication: Product used for unknown indication
     Dosage: UNK
     Route: 065
  8. DIVALPROEX SODIUM [Concomitant]
     Active Substance: DIVALPROEX SODIUM
     Indication: Product used for unknown indication
     Dosage: UNK
     Route: 065
  9. CITALOPRAM [Concomitant]
     Active Substance: CITALOPRAM
     Indication: Product used for unknown indication
     Dosage: UNK
     Route: 065

REACTIONS (12)
  - Dyskinesia [Not Recovered/Not Resolved]
  - Hallucination, olfactory [Not Recovered/Not Resolved]
  - Memory impairment [Not Recovered/Not Resolved]
  - Impaired work ability [Not Recovered/Not Resolved]
  - Off label use [Not Recovered/Not Resolved]
  - Gait disturbance [Not Recovered/Not Resolved]
  - Headache [Not Recovered/Not Resolved]
  - Tremor [Not Recovered/Not Resolved]
  - Muscular weakness [Not Recovered/Not Resolved]
  - Somnolence [Not Recovered/Not Resolved]
  - Fatigue [Not Recovered/Not Resolved]
  - Drug ineffective [Not Recovered/Not Resolved]
